FAERS Safety Report 12505844 (Version 2)
Quarter: 2018Q2

REPORT INFORMATION
  Report Type: Spontaneous
  Country: FR (occurrence: FR)
  Receive Date: 20160628
  Receipt Date: 20180525
  Transmission Date: 20180711
  Serious: Yes (Other)
  Sender: FDA-Public Use
  Company Number: FR-009507513-1306FRA004188

PATIENT
  Sex: Female

DRUGS (1)
  1. NEXPLANON [Suspect]
     Active Substance: ETONOGESTREL
     Dosage: UNK
     Dates: start: 20130603

REACTIONS (5)
  - Pyrexia [Recovered/Resolved]
  - Paralysis [Unknown]
  - Implant site pain [Unknown]
  - Local reaction [Not Recovered/Not Resolved]
  - Device intolerance [Not Recovered/Not Resolved]

NARRATIVE: CASE EVENT DATE: 201306
